FAERS Safety Report 9063615 (Version 1)
Quarter: 2013Q1

REPORT INFORMATION
  Report Type: Spontaneous
  Country: GR (occurrence: GR)
  Receive Date: 20130213
  Receipt Date: 20130213
  Transmission Date: 20140127
  Serious: Yes (Other)
  Sender: FDA-Public Use
  Company Number: GR-PFIZER INC-2013056916

PATIENT
  Sex: Male

DRUGS (3)
  1. ANGORON [Suspect]
     Dosage: 200 MG/DAY
     Route: 065
     Dates: start: 2008
  2. SINTROM [Concomitant]
     Dosage: UNK
  3. DILATREND [Concomitant]
     Dosage: UNK

REACTIONS (1)
  - Lung infection [Recovering/Resolving]
